FAERS Safety Report 7237705-3 (Version None)
Quarter: 2011Q1

REPORT INFORMATION
  Report Type: 
  Country: None (occurrence: None)
  Receive Date: 20110121
  Receipt Date: 20110112
  Transmission Date: 20110831
  Serious: Yes (Hospitalization)
  Sender: FDA-Public Use
  Company Number: PHHO2011CA00988

PATIENT
  Sex: Male
  Weight: 100 kg

DRUGS (1)
  1. AFINITOR [Suspect]
     Indication: METASTATIC RENAL CELL CARCINOMA
     Dosage: UNK
     Route: 048
     Dates: start: 20101124

REACTIONS (3)
  - APHAGIA [None]
  - MUCOSAL INFLAMMATION [None]
  - BLOOD CREATININE INCREASED [None]
